FAERS Safety Report 26180987 (Version 1)
Quarter: 2025Q4

REPORT INFORMATION
  Report Type: Spontaneous
  Country: US (occurrence: US)
  Receive Date: 20251221
  Receipt Date: 20251221
  Transmission Date: 20260117
  Serious: Yes (Other)
  Sender: AZURITY PHARMACEUTICALS
  Company Number: US-AZURITY-2025BTE00210

PATIENT
  Age: 67 Year
  Sex: Female
  Weight: 122.47 kg

DRUGS (6)
  1. SUTAB [Suspect]
     Active Substance: MAGNESIUM SULFATE\POTASSIUM CHLORIDE\SODIUM SULFATE
     Indication: Colonoscopy
     Dosage: 1 X 12 TABLETS, 1X
     Route: 048
     Dates: start: 20250402, end: 20250402
  2. SPIRONOLACTONE [Concomitant]
     Active Substance: SPIRONOLACTONE
  3. AMLODIPINE [Concomitant]
     Active Substance: AMLODIPINE BESYLATE
  4. DULOXETINE [Concomitant]
     Active Substance: DULOXETINE
  5. NITROGLYCERIN [Concomitant]
     Active Substance: NITROGLYCERIN
     Route: 060
  6. GABAPENTIN [Concomitant]
     Active Substance: GABAPENTIN

REACTIONS (9)
  - Hypersensitivity [Recovered/Resolved]
  - Arthralgia [Recovered/Resolved]
  - Neck pain [Recovered/Resolved]
  - Pain in extremity [Recovered/Resolved]
  - Chest pain [Recovered/Resolved]
  - Tremor [Recovered/Resolved]
  - Memory impairment [Recovered/Resolved]
  - Dehydration [Recovered/Resolved]
  - Dyspnoea [Recovered/Resolved]

NARRATIVE: CASE EVENT DATE: 20250402
